FAERS Safety Report 4824139-1 (Version None)
Quarter: 2005Q4

REPORT INFORMATION
  Report Type: 
  Country: None (occurrence: None)
  Receive Date: 20051109
  Receipt Date: 20051025
  Transmission Date: 20060501
  Serious: Yes (Hospitalization)
  Sender: FDA-Public Use
  Company Number: GBWYE089926OCT05

PATIENT
  Sex: Female

DRUGS (4)
  1. ENBREL [Suspect]
     Indication: DRUG USE FOR UNKNOWN INDICATION
     Route: 065
     Dates: start: 20041001, end: 20050101
  2. METHOTREXATE [Suspect]
     Route: 065
  3. PREDNISOLONE [Concomitant]
     Dosage: 10 MG DAILY
     Route: 065
  4. DICLOFENAC [Concomitant]
     Dosage: UNKNOWN
     Route: 065

REACTIONS (2)
  - JOINT SWELLING [None]
  - PULMONARY EMBOLISM [None]
